FAERS Safety Report 5283710-6 (Version None)
Quarter: 2007Q1

REPORT INFORMATION
  Report Type: 
  Country: None (occurrence: None)
  Receive Date: 20070327
  Receipt Date: 20070314
  Transmission Date: 20070707
  Serious: Yes (Hospitalization)
  Sender: FDA-Public Use
  Company Number: T200700318

PATIENT
  Age: 77 Year
  Sex: Female
  Weight: 77.6 kg

DRUGS (4)
  1. ULTRA-TECHNEKOW [Suspect]
     Indication: CARDIAC STRESS TEST
     Dosage: 10 MCI SINGLE INTRAVENOUS ; 30 MCL SINGLE INTRAVENOUS
     Route: 042
     Dates: start: 20070223, end: 20070223
  2. ULTRA-TECHNEKOW [Suspect]
     Indication: CARDIAC STRESS TEST
     Dosage: 10 MCI SINGLE INTRAVENOUS ; 30 MCL SINGLE INTRAVENOUS
     Route: 042
     Dates: start: 20070223, end: 20070223
  3. CARDIOLITE [Suspect]
     Indication: CARDIAC STRESS TEST
     Dosage: UNK, SINGLE, INTRAVENOUS
     Route: 042
     Dates: start: 20070223, end: 20070223
  4. ADENOSCAN [Suspect]
     Indication: CARDIAC STRESS TEST
     Dosage: 65 MG, SINGLE, IV BOLUS
     Route: 040
     Dates: start: 20070223, end: 20070223

REACTIONS (8)
  - CHEST PAIN [None]
  - DIARRHOEA [None]
  - DIZZINESS [None]
  - DYSPNOEA [None]
  - HEADACHE [None]
  - MALAISE [None]
  - NAUSEA [None]
  - VOMITING [None]
